FAERS Safety Report 8214727-7 (Version None)
Quarter: 2012Q1

REPORT INFORMATION
  Report Type: 
  Country: None (occurrence: None)
  Receive Date: 20120229
  Receipt Date: 20110805
  Transmission Date: 20120608
  Serious: Yes (Hospitalization, Other)
  Sender: FDA-Public Use
  Company Number: PHEH2011US00817

PATIENT
  Age: 51 Year
  Sex: Male
  Weight: 117.5 kg

DRUGS (7)
  1. GABAPENTIN [Concomitant]
  2. GABAPENTIN [Suspect]
     Indication: NEUROPATHY PERIPHERAL
     Dosage: 300 MG, BID, ORAL, 1200 MG DAILY, ORAL
     Route: 048
     Dates: start: 20030101
  3. NORTRIPTYLINE HCL [Concomitant]
  4. NEORAL [Suspect]
  5. LYRICA [Suspect]
     Dosage: ORAL
     Route: 048
     Dates: start: 20060101
  6. LEVETIRACETAM [Concomitant]
  7. RAPAMUNE [Suspect]

REACTIONS (7)
  - MYOCARDIAL INFARCTION [None]
  - BLOOD CHOLESTEROL INCREASED [None]
  - PRURITUS [None]
  - BURNING SENSATION [None]
  - NEUROPATHY PERIPHERAL [None]
  - SOMNOLENCE [None]
  - HYPERHIDROSIS [None]
